FAERS Safety Report 18239983 (Version 2)
Quarter: 2021Q3

REPORT INFORMATION
  Report Type: Spontaneous
  Country: US (occurrence: US)
  Receive Date: 20200908
  Receipt Date: 20210723
  Transmission Date: 20211014
  Serious: Yes (Other)
  Sender: FDA-Public Use
  Company Number: US-SA-2020SA242549

PATIENT
  Age: 57 Year

DRUGS (1)
  1. ZANTAC [Suspect]
     Active Substance: RANITIDINE HYDROCHLORIDE
     Indication: DYSPEPSIA
     Dosage: 150 MG, FREQUENCY: OTHER
     Dates: start: 201401, end: 201712

REACTIONS (6)
  - Cardiac neoplasm malignant [Unknown]
  - Brain neoplasm malignant [Recovered/Resolved]
  - Renal cancer [Unknown]
  - Hepatic cancer stage IV [Unknown]
  - Mesothelioma malignant [Unknown]
  - Lung carcinoma cell type unspecified stage IV [Unknown]

NARRATIVE: CASE EVENT DATE: 20190701
